FAERS Safety Report 9529613 (Version 4)
Quarter: 2014Q1

REPORT INFORMATION
  Report Type: Spontaneous
  Country: JP (occurrence: JP)
  Receive Date: 20130917
  Receipt Date: 20140103
  Transmission Date: 20141002
  Serious: Yes (Life-Threatening, Hospitalization, Disabling)
  Sender: FDA-Public Use
  Company Number: JP-ABBVIE-12P-087-1015734-00

PATIENT
  Age: 70 Year
  Sex: Male
  Weight: 55 kg

DRUGS (17)
  1. HUMIRA [Suspect]
     Indication: PRODUCT USED FOR UNKNOWN INDICATION
     Dates: start: 20091209, end: 20120125
  2. HUMIRA [Suspect]
     Dates: start: 20120425
  3. PREDNISOLONE [Suspect]
     Indication: ASTHMA
     Route: 048
  4. PREDNISOLONE [Suspect]
     Indication: RHEUMATOID ARTHRITIS
  5. CELECOXIB [Concomitant]
     Indication: RHEUMATOID ARTHRITIS
     Route: 048
  6. AN EXTRACT FROM INFLAMMATORY RABBIT SKIN INOCULATED BY VACCINIA VIRUS [Concomitant]
     Indication: RHEUMATOID ARTHRITIS
  7. MENATETRENONE [Concomitant]
     Indication: OSTEOPOROSIS
     Route: 048
  8. MENATETRENONE [Concomitant]
     Indication: RHEUMATOID ARTHRITIS
  9. FENOFIBRATE [Concomitant]
     Indication: MYOCARDIAL INFARCTION
     Route: 048
  10. LOSARTAN POTASSIUM [Concomitant]
     Indication: HYPERTENSION
     Route: 048
  11. AZOSEMIDE [Concomitant]
     Indication: CARDIAC FAILURE
     Route: 048
  12. ALLOPURINOL [Concomitant]
     Route: 048
  13. SODIUM FERROUS CITRATE [Concomitant]
     Indication: ANAEMIA
     Route: 048
  14. CLOPIDOGREL SULFATE [Concomitant]
     Indication: CARDIAC FAILURE
     Route: 048
  15. FAMOTIDINE [Concomitant]
     Indication: GASTRIC ULCER
     Route: 048
  16. NAFTOPIDIL [Concomitant]
     Indication: DYSURIA
     Route: 048
  17. TOLTERODINE TARTRATE [Concomitant]
     Indication: HYPERTONIC BLADDER

REACTIONS (7)
  - Osteomyelitis [Recovered/Resolved with Sequelae]
  - Myocardial infarction [Recovered/Resolved]
  - Myocardial infarction [Recovered/Resolved]
  - Angina pectoris [Recovered/Resolved]
  - Angina pectoris [Recovered/Resolved]
  - Jaw fracture [Recovered/Resolved with Sequelae]
  - Osteomyelitis [Recovered/Resolved with Sequelae]
